FAERS Safety Report 17874677 (Version 1)
Quarter: 2020Q2

REPORT INFORMATION
  Report Type: Spontaneous
  Country: US (occurrence: US)
  Receive Date: 20200608
  Receipt Date: 20200608
  Transmission Date: 20200714
  Serious: No
  Sender: FDA-Public Use
  Company Number: None

PATIENT
  Age: 60 Year
  Sex: Male
  Weight: 65.5 kg

DRUGS (4)
  1. ATORVASTATIN 10 MG [Concomitant]
     Active Substance: ATORVASTATIN
     Dates: start: 20200530
  2. REMDESIVIR. [Suspect]
     Active Substance: REMDESIVIR
     Indication: COVID-19 PNEUMONIA
     Route: 042
  3. CEFTRIAXONE 1GM [Concomitant]
     Dates: start: 20200529
  4. ACETAZOLAMIDE EXTENDED RELEASE [Concomitant]
     Dates: start: 20200529, end: 20200601

REACTIONS (2)
  - Alanine aminotransferase increased [None]
  - Aspartate aminotransferase increased [None]

NARRATIVE: CASE EVENT DATE: 20200602
